FAERS Safety Report 5454941-7 (Version None)
Quarter: 2007Q3

REPORT INFORMATION
  Report Type: 
  Country: None (occurrence: None)
  Receive Date: 20070917
  Receipt Date: 20070905
  Transmission Date: 20080115
  Serious: Yes (Other)
  Sender: FDA-Public Use
  Company Number: JP-PFIZER INC-2007069971

PATIENT
  Age: 83 Year
  Sex: Male

DRUGS (20)
  1. DETRUSITOL LA [Suspect]
     Indication: HYPERTONIC BLADDER
     Dosage: DAILY DOSE:4MG
     Route: 048
     Dates: start: 20070519, end: 20070810
  2. BABYPRIN [Concomitant]
     Route: 048
  3. ALFAROL [Concomitant]
     Route: 048
  4. RABEPRAZOLE SODIUM [Concomitant]
     Route: 048
  5. RIVOTRIL [Concomitant]
     Route: 048
  6. PRAMIPEXOLE DIHYDROCHLORIDE [Concomitant]
     Route: 048
  7. SERMION [Concomitant]
     Route: 048
  8. HYDERGINE [Concomitant]
     Route: 048
  9. JUVELA [Concomitant]
     Route: 048
  10. SELEGILINE HYDROCHLORIDE [Concomitant]
     Route: 048
  11. LENDORMIN [Concomitant]
  12. MADOPAR [Concomitant]
  13. GRAMALIL [Concomitant]
     Route: 048
  14. DOPS [Concomitant]
     Route: 048
  15. MAGNESIUM OXIDE [Concomitant]
     Route: 048
  16. MAALOX [Concomitant]
     Route: 048
  17. GOREI-SAN [Concomitant]
     Route: 048
  18. NIFLAN [Concomitant]
     Route: 031
  19. ADOFEED [Concomitant]
     Route: 062
  20. GENTACIN [Concomitant]
     Route: 062

REACTIONS (6)
  - AFFECT LABILITY [None]
  - AGGRESSION [None]
  - AGITATION [None]
  - DIZZINESS [None]
  - MICTURITION FREQUENCY DECREASED [None]
  - NERVOUSNESS [None]
